FAERS Safety Report 4445769-5 (Version None)
Quarter: 2004Q3

REPORT INFORMATION
  Report Type: 
  Country: None (occurrence: None)
  Receive Date: 20040910
  Receipt Date: 20040907
  Transmission Date: 20050211
  Serious: Yes (Other)
  Sender: FDA-Public Use
  Company Number: PHEH2004US09601

PATIENT
  Age: 70 Year
  Sex: Male

DRUGS (19)
  1. AREDIA [Suspect]
     Dosage: 90 MG, QMO
     Dates: start: 20020523
  2. ZOLADEX [Concomitant]
     Indication: PROSTATE CANCER
     Dosage: UNK, UNK
     Dates: start: 20010101
  3. ACCUPRIL [Concomitant]
     Dosage: 20 UNK, UNK
  4. FUROSEMIDE [Concomitant]
     Dosage: 20 MG, QOD
     Dates: start: 20010901
  5. CELEBREX [Concomitant]
     Dosage: 200 UNK, BID
     Dates: start: 20011101
  6. ATACAND [Concomitant]
  7. THALIDOMIDE [Concomitant]
     Indication: PROSTATE CANCER
     Dates: start: 20020701
  8. CARDURA [Concomitant]
     Dosage: 4 MG, UNK
     Dates: start: 20020501, end: 20020601
  9. AMBIEN [Concomitant]
     Dosage: 5 MG, UNK
     Dates: start: 20040101
  10. LEVAQUIN [Concomitant]
     Dosage: 500 MG, QD
     Dates: start: 20040101, end: 20040101
  11. CIPRO [Concomitant]
     Dosage: 500 MG, QD
  12. HYDROCORTISONE [Concomitant]
  13. PROSCAR [Concomitant]
     Indication: PROSTATE CANCER
  14. CALCITRIOL [Concomitant]
     Dates: start: 20030101
  15. TAXOTERE [Concomitant]
     Indication: PROSTATE CANCER
     Dosage: 60 UNK, UNK
     Dates: start: 20010701
  16. CARBA [Concomitant]
     Indication: PROSTATE CANCER
     Dosage: 600 UNK, UNK
     Dates: start: 20010701
  17. CASODEX [Concomitant]
     Indication: PROSTATE CANCER
     Dates: start: 20010701
  18. TAXOL [Concomitant]
     Indication: PROSTATE CANCER
     Dosage: 120 UNK, UNK
     Dates: start: 20010901
  19. AVODART [Concomitant]
     Indication: PROSTATE CANCER
     Dates: start: 20030101

REACTIONS (3)
  - ENDODONTIC PROCEDURE [None]
  - OSTEOLYSIS [None]
  - TOOTH EXTRACTION [None]
